FAERS Safety Report 10143211 (Version 1)
Quarter: 2014Q2

REPORT INFORMATION
  Report Type: Spontaneous
  Country: US (occurrence: None)
  Receive Date: 20140429
  Receipt Date: 20140429
  Transmission Date: 20141212
  Serious: Yes (Other)
  Sender: FDA-Public Use
  Company Number: None

PATIENT
  Age: 56 Year
  Sex: Male
  Weight: 86.18 kg

DRUGS (1)
  1. VALACYCLOVIR [Suspect]
     Indication: HERPES ZOSTER
     Dosage: 1 EVERY 8 HRS.
     Route: 048
     Dates: start: 20140403, end: 20140410

REACTIONS (6)
  - Swollen tongue [None]
  - Glossodynia [None]
  - Arthralgia [None]
  - Back pain [None]
  - Nervous system disorder [None]
  - Hypokinesia [None]
